FAERS Safety Report 20260867 (Version 2)
Quarter: 2022Q1

REPORT INFORMATION
  Report Type: Spontaneous
  Country: US (occurrence: US)
  Receive Date: 20211230
  Receipt Date: 20220104
  Transmission Date: 20220424
  Serious: No
  Sender: FDA-Public Use
  Company Number: US-ORGANON-O2112USA000533

PATIENT
  Age: 20 Year
  Sex: Female

DRUGS (1)
  1. NEXPLANON [Suspect]
     Active Substance: ETONOGESTREL
     Dosage: 68 MG IN LEFT UPPER ARM
     Route: 059
     Dates: start: 20190328

REACTIONS (1)
  - Device issue [Unknown]

NARRATIVE: CASE EVENT DATE: 20201215
